FAERS Safety Report 15351739 (Version 1)
Quarter: 2018Q3

REPORT INFORMATION
  Report Type: Spontaneous
  Country: IT (occurrence: IT)
  Receive Date: 20180905
  Receipt Date: 20180905
  Transmission Date: 20181010
  Serious: Yes (Hospitalization)
  Sender: FDA-Public Use
  Company Number: IT-MYLANLABS-2018M1064814

PATIENT
  Age: 53 Year
  Sex: Male

DRUGS (6)
  1. CYTARABINE. [Suspect]
     Active Substance: CYTARABINE
     Dosage: TRIPLE INTRATHECAL THERAPY WAS RE?INITIATED WITH SIX FURTHER ADMINISTRATIONS EVERY 14 DAYS.
     Route: 037
  2. METHOTREXATE. [Suspect]
     Active Substance: METHOTREXATE
     Indication: T-CELL TYPE ACUTE LEUKAEMIA
     Dosage: FOR A TOTAL OF EIGHT DOSES (FIRST INDUCTION OF TRIPLE INTRATHECAL THERAPY)
     Route: 037
  3. METHOTREXATE. [Suspect]
     Active Substance: METHOTREXATE
     Dosage: SECOND INDUCTION WITH A HIGH DOSE OF 5000 MG/SQM OVER 24 H
     Route: 042
  4. CYTARABINE. [Suspect]
     Active Substance: CYTARABINE
     Indication: T-CELL TYPE ACUTE LEUKAEMIA
     Dosage: FOR A TOTAL OF EIGHT DOSES (FIRST INDUCTION OF TRIPLE INTRATHECAL THERAPY)
     Route: 037
  5. METHOTREXATE. [Suspect]
     Active Substance: METHOTREXATE
     Dosage: TRIPLE INTRATHECAL THERAPY WAS RE?INITIATED WITH SIX FURTHER ADMINISTRATIONS EVERY 14 DAYS.
     Route: 037
  6. DEXAMETHASONE. [Concomitant]
     Active Substance: DEXAMETHASONE
     Indication: T-CELL TYPE ACUTE LEUKAEMIA
     Dosage: FOR A TOTAL OF EIGHT DOSES
     Route: 037

REACTIONS (7)
  - Myelopathy [Not Recovered/Not Resolved]
  - Demyelination [Not Recovered/Not Resolved]
  - Leukoencephalopathy [Not Recovered/Not Resolved]
  - Urinary incontinence [Not Recovered/Not Resolved]
  - Ataxia [Not Recovered/Not Resolved]
  - Paraplegia [Not Recovered/Not Resolved]
  - Blindness [Not Recovered/Not Resolved]
